FAERS Safety Report 5775734-7 (Version None)
Quarter: 2008Q2

REPORT INFORMATION
  Report Type: 
  Country: None (occurrence: None)
  Receive Date: 20080617
  Receipt Date: 20080605
  Transmission Date: 20081010
  Serious: Yes (Other)
  Sender: FDA-Public Use
  Company Number: BR-PFIZER INC-2007065991

PATIENT
  Sex: Female
  Weight: 58 kg

DRUGS (5)
  1. CHANTIX [Suspect]
     Indication: TOBACCO USER
     Route: 048
     Dates: start: 20070721, end: 20080126
  2. NATRILIX - SLOW RELEASE [Concomitant]
     Indication: HYPERTENSION
     Dosage: DAILY DOSE:1.5MG
     Route: 048
  3. RIVOTRIL [Concomitant]
     Dosage: DAILY DOSE:1MG
     Route: 048
     Dates: start: 20040101
  4. SULPIRIDE [Concomitant]
     Dosage: DAILY DOSE:25MG
     Route: 048
     Dates: start: 20040101
  5. BROMAZEPAM [Concomitant]
     Dosage: DAILY DOSE:1MG
     Route: 048
     Dates: start: 20040101

REACTIONS (1)
  - EYELID OPERATION [None]
